FAERS Safety Report 9155798 (Version 1)
Quarter: 2013Q1

REPORT INFORMATION
  Report Type: Report from Study
  Country: US (occurrence: US)
  Receive Date: 20130311
  Receipt Date: 20130311
  Transmission Date: 20140127
  Serious: Yes (Other)
  Sender: FDA-Public Use
  Company Number: US-009507513-1303USA004333

PATIENT
  Sex: Male

DRUGS (3)
  1. VICTRELIS [Suspect]
     Indication: CHRONIC HEPATITIS C
     Dosage: UNK
  2. RIBAVIRIN [Suspect]
     Indication: CHRONIC HEPATITIS C
     Dosage: 600MG DIVIDED DOSES (1 IN 1 D)
     Route: 048
     Dates: start: 20120618, end: 20120818
  3. PEGINTERFERON ALFA-2A [Suspect]
     Indication: CHRONIC HEPATITIS C
     Dosage: 180 MICROGRAM, QW
     Route: 058
     Dates: start: 20120618, end: 20120818

REACTIONS (12)
  - Generalised oedema [Unknown]
  - White blood cell count decreased [Unknown]
  - Chest discomfort [Unknown]
  - Muscle spasms [Unknown]
  - Local swelling [Unknown]
  - Headache [Recovered/Resolved]
  - Insomnia [Unknown]
  - Red blood cell count decreased [Unknown]
  - Fatigue [Unknown]
  - Nausea [Unknown]
  - Anaemia [Unknown]
  - Drug ineffective [Unknown]
